FAERS Safety Report 4393060-8 (Version None)
Quarter: 2004Q3

REPORT INFORMATION
  Report Type: 
  Country: None (occurrence: None)
  Receive Date: 20040708
  Receipt Date: 20040628
  Transmission Date: 20050211
  Serious: Yes (Other)
  Sender: FDA-Public Use
  Company Number: PHNU2004DE02313

PATIENT
  Sex: Female

DRUGS (1)
  1. ELIDEL [Suspect]
     Indication: NEURODERMATITIS
     Route: 061
     Dates: start: 20040601, end: 20040627

REACTIONS (2)
  - DYSSTASIA [None]
  - FATIGUE [None]
